FAERS Safety Report 7376205-7 (Version None)
Quarter: 2011Q1

REPORT INFORMATION
  Report Type: 
  Country: None (occurrence: None)
  Receive Date: 20110325
  Receipt Date: 20110315
  Transmission Date: 20110831
  Serious: Yes (Hospitalization)
  Sender: FDA-Public Use
  Company Number: US-ACTELION-A-US2011-46357

PATIENT

DRUGS (2)
  1. TRACLEER [Suspect]
     Indication: PULMONARY ARTERIAL HYPERTENSION
     Dosage: UNK
     Route: 048
     Dates: start: 20091204
  2. CALCIUM CHANNEL BLOCKERS [Concomitant]

REACTIONS (5)
  - PNEUMONIA [None]
  - OVARIAN CANCER [None]
  - LIVER DISORDER [None]
  - COLLAPSE OF LUNG [None]
  - PLEURAL DISORDER [None]
